FAERS Safety Report 5284414-6 (Version None)
Quarter: 2007Q2

REPORT INFORMATION
  Report Type: 
  Country: None (occurrence: None)
  Receive Date: 20070403
  Receipt Date: 20070329
  Transmission Date: 20071010
  Serious: Yes (Death)
  Sender: FDA-Public Use
  Company Number: 2007UW06374

PATIENT
  Sex: Male

DRUGS (2)
  1. SEROQUEL [Suspect]
     Dosage: 100 MG QAM / 100 Q12:00 / 200 QHS
     Route: 048
  2. TEGRETOL [Concomitant]

REACTIONS (1)
  - DEATH [None]
